FAERS Safety Report 7084410-2 (Version None)
Quarter: 2010Q4

REPORT INFORMATION
  Report Type: 
  Country: None (occurrence: None)
  Receive Date: 20101104
  Receipt Date: 20101030
  Transmission Date: 20110411
  Serious: Yes (Other)
  Sender: FDA-Public Use
  Company Number: US-PFIZER INC-2010138347

PATIENT
  Sex: Female
  Weight: 94.3 kg

DRUGS (5)
  1. LIPITOR [Suspect]
     Indication: BLOOD CHOLESTEROL INCREASED
     Dosage: 40 MG, 1X/DAY
     Route: 048
  2. ZOLOFT [Concomitant]
     Indication: ANXIETY
     Dosage: 100 MG, UNK
     Route: 048
  3. ZOLOFT [Concomitant]
     Indication: DEPRESSION
  4. TRIAMTERENE [Concomitant]
     Dosage: 75 MG, UNK
     Route: 048
  5. LEVOTHYROXINE SODIUM [Concomitant]
     Indication: THYROID DISORDER
     Dosage: 175 UG, UNK
     Route: 048

REACTIONS (1)
  - BLOOD PRESSURE INCREASED [None]
